FAERS Safety Report 8230228-4 (Version None)
Quarter: 2012Q1

REPORT INFORMATION
  Report Type: 
  Country: None (occurrence: None)
  Receive Date: 20120321
  Receipt Date: 20120321
  Transmission Date: 20120608
  Serious: Yes (Hospitalization)
  Sender: FDA-Public Use
  Company Number: None

PATIENT
  Sex: Female
  Weight: 46.6 kg

DRUGS (2)
  1. TAXOL [Suspect]
     Dosage: 242 MG
  2. CARBOPLATIN [Suspect]
     Dosage: 556 MG

REACTIONS (3)
  - ANAL HAEMORRHAGE [None]
  - GASTROENTERITIS RADIATION [None]
  - CLOSTRIDIUM TEST POSITIVE [None]
